FAERS Safety Report 24201638 (Version 1)
Quarter: 2024Q3

REPORT INFORMATION
  Report Type: Spontaneous
  Country: US (occurrence: None)
  Receive Date: 20240812
  Receipt Date: 20240812
  Transmission Date: 20241017
  Serious: No
  Sender: Public
  Company Number: None

PATIENT
  Age: 43 Year
  Sex: Male

DRUGS (1)
  1. TREMFYA [Suspect]
     Active Substance: GUSELKUMAB
     Indication: Psoriasis
     Dosage: INJECT 100MCG SUBCUTANEOUSLY EVERY 8 WEEKS AS DIRECTED
     Route: 058
     Dates: start: 202203

REACTIONS (1)
  - Cough [None]
